FAERS Safety Report 17223469 (Version 2)
Quarter: 2020Q1

REPORT INFORMATION
  Report Type: Spontaneous
  Country: FR (occurrence: FR)
  Receive Date: 20200102
  Receipt Date: 20200219
  Transmission Date: 20200409
  Serious: Yes (Hospitalization, Other)
  Sender: FDA-Public Use
  Company Number: FR-AUROBINDO-AUR-APL-2019-108996

PATIENT
  Age: 42 Year
  Sex: Female

DRUGS (7)
  1. JINARC [Suspect]
     Active Substance: TOLVAPTAN
     Indication: CONGENITAL CYSTIC KIDNEY DISEASE
     Dosage: 90 MILLIGRAM, ONCE A DAY
     Route: 048
     Dates: start: 20191125
  2. JINARC [Suspect]
     Active Substance: TOLVAPTAN
     Dosage: 30 MILLIGRAM, ONCE A DAY
     Route: 048
     Dates: start: 20191125
  3. JINARC [Suspect]
     Active Substance: TOLVAPTAN
     Dosage: 45 MILLIGRAM, ONCE A DAY
     Route: 048
     Dates: start: 201908
  4. JINARC [Suspect]
     Active Substance: TOLVAPTAN
     Dosage: 15 MILLIGRAM, ONCE A DAY
     Route: 048
     Dates: start: 201908
  5. JINARC [Suspect]
     Active Substance: TOLVAPTAN
     Dosage: 30 MILLIGRAM, ONCE A DAY
     Route: 048
     Dates: start: 2019, end: 2019
  6. PERINDOPRIL [Suspect]
     Active Substance: PERINDOPRIL
     Indication: HYPERTENSION
     Dosage: 2 MILLIGRAM, ONCE A DAY
     Route: 065
  7. JINARC [Suspect]
     Active Substance: TOLVAPTAN
     Dosage: 60 MILLIGRAM, ONCE A DAY
     Route: 048
     Dates: start: 2019, end: 2019

REACTIONS (8)
  - Chlamydial infection [Unknown]
  - Malaise [Unknown]
  - Glomerular filtration rate decreased [Not Recovered/Not Resolved]
  - Blood potassium decreased [Unknown]
  - Polyuria [Unknown]
  - Diarrhoea [Not Recovered/Not Resolved]
  - Blood sodium decreased [Unknown]
  - Dehydration [Unknown]

NARRATIVE: CASE EVENT DATE: 201908
